FAERS Safety Report 11232161 (Version 2)
Quarter: 2015Q3

REPORT INFORMATION
  Report Type: Spontaneous
  Country: DE (occurrence: DE)
  Receive Date: 20150701
  Receipt Date: 20150710
  Transmission Date: 20151125
  Serious: Yes (Other)
  Sender: FDA-Public Use
  Company Number: DE-BAYER-2015-368775

PATIENT
  Age: 53 Year
  Sex: Male
  Weight: 79.82 kg

DRUGS (8)
  1. NEXAVAR [Suspect]
     Active Substance: SORAFENIB
     Dosage: UNK
     Route: 048
     Dates: start: 201112, end: 201205
  2. TEMSIROLIMUS [Concomitant]
     Active Substance: TEMSIROLIMUS
     Dosage: UNK
     Dates: start: 201205, end: 201309
  3. SIMVASTATINE [Concomitant]
     Active Substance: SIMVASTATIN
  4. SUNITINIB [Concomitant]
     Active Substance: SUNITINIB
     Dosage: UNK
     Dates: start: 201107, end: 201112
  5. MIRTAZAPINE. [Concomitant]
     Active Substance: MIRTAZAPINE
  6. PREGABALIN. [Concomitant]
     Active Substance: PREGABALIN
  7. METAMIZOL [Concomitant]
     Active Substance: METAMIZOLE SODIUM
  8. METOPROLOL [Concomitant]
     Active Substance: METOPROLOL

REACTIONS (1)
  - Disease progression [None]
